FAERS Safety Report 4708518-9 (Version None)
Quarter: 2005Q3

REPORT INFORMATION
  Report Type: 
  Country: None (occurrence: None)
  Receive Date: 20050707
  Receipt Date: 20050627
  Transmission Date: 20060218
  Serious: Yes (Other)
  Sender: FDA-Public Use
  Company Number: US-GLAXOSMITHKLINE-A0564351A

PATIENT
  Sex: Male

DRUGS (1)
  1. PAXIL CR [Suspect]
     Indication: DEPRESSION
     Dosage: 12.5MG PER DAY
     Route: 048
     Dates: start: 20040420

REACTIONS (6)
  - AFFECT LABILITY [None]
  - AGGRESSION [None]
  - AGITATION [None]
  - DRUG DOSE OMISSION [None]
  - MURDER [None]
  - TREATMENT NONCOMPLIANCE [None]
